FAERS Safety Report 8570876 (Version 3)
Quarter: 2013Q1

REPORT INFORMATION
  Report Type: Spontaneous
  Country: FI (occurrence: FI)
  Receive Date: 20120521
  Receipt Date: 20130124
  Transmission Date: 20140127
  Serious: Yes (Other)
  Sender: FDA-Public Use
  Company Number: FI-PFIZER INC-2012118714

PATIENT
  Age: 45 Year
  Sex: Female

DRUGS (1)
  1. CABERGOLINE [Suspect]
     Dosage: 2 MG DAILY
     Dates: start: 2011

REACTIONS (7)
  - Bone neoplasm [Not Recovered/Not Resolved]
  - Bone loss [Not Recovered/Not Resolved]
  - Enchondroma [Not Recovered/Not Resolved]
  - Chest pain [Not Recovered/Not Resolved]
  - Musculoskeletal chest pain [Not Recovered/Not Resolved]
  - Arthralgia [Not Recovered/Not Resolved]
  - Insomnia [Not Recovered/Not Resolved]
